FAERS Safety Report 4278205-2 (Version None)
Quarter: 2004Q1

REPORT INFORMATION
  Report Type: 
  Country: None (occurrence: None)
  Receive Date: 20040123
  Receipt Date: 20031211
  Transmission Date: 20041129
  Serious: Yes (Life-Threatening, Hospitalization, Other)
  Sender: FDA-Public Use
  Company Number: FR-BRISTOL-MYERS SQUIBB COMPANY-12463170

PATIENT
  Age: 30 Year
  Sex: Male
  Weight: 62 kg

DRUGS (6)
  1. HOLOXAN [Suspect]
     Indication: TESTIS CANCER
     Route: 042
     Dates: start: 20020507, end: 20020601
  2. TAXOL [Suspect]
     Indication: TESTIS CANCER
     Route: 042
     Dates: start: 20011122, end: 20020315
  3. BLEOMYCIN SULFATE [Suspect]
     Indication: TESTIS CANCER
     Dosage: DAY 1 AND DAY 3
     Route: 042
     Dates: start: 20011120
  4. VEPESIDE-SANDOZ [Suspect]
     Indication: TESTIS CANCER
     Dosage: DAY 1 TO DAY 3
     Route: 042
     Dates: start: 20011120, end: 20020315
  5. CISPLATYL [Suspect]
     Indication: TESTIS CANCER
     Dosage: DAY 2 WITH 1RST COURSE 21-NOV-01 TO MAR-2002 AND AGAIN FROM 07-MAY-02 TO 01-JUN-02 FOR 2 CYCLES.
     Route: 042
     Dates: start: 20011121, end: 20020601
  6. ADRIAMYCIN PFS [Suspect]
     Indication: TESTIS CANCER
     Route: 042
     Dates: start: 20020801, end: 20021001

REACTIONS (6)
  - ACUTE MYELOID LEUKAEMIA [None]
  - BONE MARROW DEPRESSION [None]
  - LEUKAEMIA [None]
  - METABOLIC ACIDOSIS [None]
  - NEUROPATHY PERIPHERAL [None]
  - RENAL FAILURE ACUTE [None]
